FAERS Safety Report 23589027 (Version 1)
Quarter: 2024Q1

REPORT INFORMATION
  Report Type: Spontaneous
  Country: US (occurrence: US)
  Receive Date: 20240303
  Receipt Date: 20240303
  Transmission Date: 20240410
  Serious: No
  Sender: FDA-Public Use
  Company Number: US-BRISTOL-MYERS SQUIBB COMPANY-2024-032841

PATIENT
  Age: 74 Year
  Sex: Female

DRUGS (1)
  1. POMALYST [Suspect]
     Active Substance: POMALIDOMIDE
     Indication: Plasma cell myeloma
     Route: 048

REACTIONS (5)
  - Mucosal dryness [Recovering/Resolving]
  - Feeling abnormal [Recovering/Resolving]
  - Dehydration [Recovering/Resolving]
  - Dry throat [Recovering/Resolving]
  - Fatigue [Recovering/Resolving]
